FAERS Safety Report 5977568-7 (Version None)
Quarter: 2008Q4

REPORT INFORMATION
  Report Type: 
  Country: None (occurrence: None)
  Receive Date: 20081124
  Receipt Date: 20081111
  Transmission Date: 20090506
  Serious: Yes (Death, Hospitalization, Other)
  Sender: FDA-Public Use
  Company Number: 54367

PATIENT
  Age: 33 Year
  Sex: Female

DRUGS (2)
  1. PROPOFOL [Suspect]
     Indication: SUBARACHNOID HAEMORRHAGE
     Dosage: 20 UG/KG/MON, 120 UG/KG/MIN, 180 UG/KG/MIN
  2. PROPOFOL [Suspect]
     Indication: SUBDURAL HAEMATOMA
     Dosage: 20 UG/KG/MON, 120 UG/KG/MIN, 180 UG/KG/MIN

REACTIONS (7)
  - ATRIOVENTRICULAR BLOCK FIRST DEGREE [None]
  - BLOOD TRIGLYCERIDES INCREASED [None]
  - BUNDLE BRANCH BLOCK LEFT [None]
  - BUNDLE BRANCH BLOCK RIGHT [None]
  - CARDIAC ARREST [None]
  - METABOLIC ACIDOSIS [None]
  - PROPOFOL INFUSION SYNDROME [None]
